FAERS Safety Report 9202119 (Version 1)
Quarter: 2013Q1

REPORT INFORMATION
  Report Type: Spontaneous
  Country: NL (occurrence: None)
  Receive Date: 20130328
  Receipt Date: 20130328
  Transmission Date: 20140127
  Serious: Yes (Hospitalization, Other)
  Sender: FDA-Public Use
  Company Number: 2013AP003770

PATIENT
  Age: 53 Year
  Sex: Female

DRUGS (3)
  1. VENLAFAXINE (VENLAFAXINE) [Suspect]
     Indication: OVERDOSE
  2. VENLAFAXINE (VENLAFAXINE) [Suspect]
     Indication: DEPRESSION
  3. LORAZEPAM (LORAZEPAM) [Concomitant]

REACTIONS (6)
  - Haemodynamic instability [None]
  - Depressed level of consciousness [None]
  - Overdose [None]
  - Respiratory acidosis [None]
  - Toxicity to various agents [None]
  - Laceration [None]
